FAERS Safety Report 6252330-9 (Version None)
Quarter: 2009Q2

REPORT INFORMATION
  Report Type: 
  Country: None (occurrence: None)
  Receive Date: 20090629
  Receipt Date: 20090629
  Transmission Date: 20091009
  Serious: Yes (Other)
  Sender: FDA-Public Use
  Company Number: None

PATIENT
  Sex: Female
  Weight: 62.5964 kg

DRUGS (1)
  1. FOSAMAX [Suspect]
     Indication: BONE DENSITY ABNORMAL
     Dosage: 1 TABLET WEEKLY ORAL
     Route: 048
     Dates: start: 20080901

REACTIONS (2)
  - PAIN IN JAW [None]
  - TOOTH EXTRACTION [None]
